FAERS Safety Report 22385712 (Version 5)
Quarter: 2023Q4

REPORT INFORMATION
  Report Type: Spontaneous
  Country: PR (occurrence: PR)
  Receive Date: 20230530
  Receipt Date: 20231218
  Transmission Date: 20240110
  Serious: No
  Sender: FDA-Public Use
  Company Number: PR-PFIZER INC-202300201466

PATIENT
  Age: 69 Year
  Sex: Female

DRUGS (12)
  1. IBRANCE [Suspect]
     Active Substance: PALBOCICLIB
     Dosage: 125 MGS, CYCLIC (ONE TAB DAILY 21 DAYS ON + 7 DAYS OFF)
     Route: 048
     Dates: start: 20230112, end: 20230510
  2. IBRANCE [Suspect]
     Active Substance: PALBOCICLIB
     Dosage: 125 MGS, CYCLIC (ONE TAB DAILY 21 DAYS ON + 7 DAYS OFF)
     Route: 048
     Dates: start: 2023, end: 20230826
  3. IBRANCE [Suspect]
     Active Substance: PALBOCICLIB
     Dosage: 125 MGS, CYCLIC (ONE TAB DAILY 21 DAYS ON + 7 DAYS OFF)
     Route: 048
     Dates: start: 2023, end: 202311
  4. IBRANCE [Suspect]
     Active Substance: PALBOCICLIB
     Dosage: 1 TAB FOR 21 DAYS, REST 7 DAYS, EVERY 28 DAYS
     Route: 048
     Dates: start: 20231113, end: 20231129
  5. ASPIRIN [Concomitant]
     Active Substance: ASPIRIN
     Dosage: UNK
  6. CARVEDILOL [Concomitant]
     Active Substance: CARVEDILOL
     Dosage: UNK
  7. DICLOFENAC [Concomitant]
     Active Substance: DICLOFENAC
     Dosage: UNK
  8. DIGOXIN [Concomitant]
     Active Substance: DIGOXIN
     Dosage: UNK
  9. FUROSEMIDE [Concomitant]
     Active Substance: FUROSEMIDE
     Dosage: UNK
  10. LETROZOLE [Concomitant]
     Active Substance: LETROZOLE
     Dosage: UNK
  11. LISINOPRIL [Concomitant]
     Active Substance: LISINOPRIL
     Dosage: UNK
  12. ZOLEDRONIC ACID [Concomitant]
     Active Substance: ZOLEDRONIC ACID
     Dosage: UNK

REACTIONS (8)
  - Neoplasm progression [Not Recovered/Not Resolved]
  - Influenza [Recovering/Resolving]
  - Pain [Recovering/Resolving]
  - Asthenia [Recovering/Resolving]
  - Haemoglobin decreased [Unknown]
  - COVID-19 [Unknown]
  - Decreased appetite [Not Recovered/Not Resolved]
  - Weight decreased [Not Recovered/Not Resolved]

NARRATIVE: CASE EVENT DATE: 20230101
